FAERS Safety Report 8304013 (Version 2)
Quarter: 2012Q4

REPORT INFORMATION
  Report Type: 
  Country: CA (occurrence: CA)
  Receive Date: 20111221
  Receipt Date: 20121120
  Transmission Date: 20130627
  Serious: Yes (Hospitalization)
  Sender: FDA-Public Use
  Company Number: CA-JNJFOC-20111205296

PATIENT
  Sex: Female
  Weight: 58.5 kg

DRUGS (3)
  1. REMICADE [Suspect]
     Indication: CROHN^S DISEASE
     Route: 042
     Dates: start: 20111208
  2. REMICADE [Suspect]
     Indication: CROHN^S DISEASE
     Route: 042
     Dates: start: 201004
  3. CIPRALEX [Concomitant]
     Indication: ANXIETY
     Route: 048
     Dates: start: 201107

REACTIONS (6)
  - Dehydration [Unknown]
  - Influenza [Unknown]
  - Oral pain [Unknown]
  - Lethargy [Recovered/Resolved]
  - Oropharyngeal pain [Recovered/Resolved]
  - Aphagia [Recovered/Resolved]
